FAERS Safety Report 5632958-7 (Version None)
Quarter: 2008Q1

REPORT INFORMATION
  Report Type: 
  Country: None (occurrence: None)
  Receive Date: 20080214
  Receipt Date: 20080131
  Transmission Date: 20080703
  Serious: Yes (Hospitalization)
  Sender: FDA-Public Use
  Company Number: S08-ITA-00027-01

PATIENT
  Age: 85 Year
  Sex: Male

DRUGS (7)
  1. CITALOPRAM HYDROBROMIDE [Suspect]
     Indication: DEPRESSION
     Dosage: 5 DROPS QD PO
     Route: 048
     Dates: start: 20070912, end: 20071019
  2. CITALOPRAM HYDROBROMIDE [Suspect]
     Indication: DEPRESSION
     Dates: start: 20071022
  3. MELATONIN [Concomitant]
  4. PROMAZINE HYDROCHLORIDE [Concomitant]
  5. FOLIN (FOLIC ACID) [Concomitant]
  6. PANTORC (PANTOPRAZOLE SODIUM) [Concomitant]
  7. PANTETINA/CARNITINA/CIPROEPTADINA (CARPANTIN) [Concomitant]

REACTIONS (6)
  - ANAEMIA [None]
  - EROSIVE DUODENITIS [None]
  - GASTRIC ULCER HAEMORRHAGE [None]
  - GASTRITIS EROSIVE [None]
  - HAEMATURIA [None]
  - WHITE BLOOD CELL COUNT INCREASED [None]
